FAERS Safety Report 5407766-2 (Version None)
Quarter: 2007Q3

REPORT INFORMATION
  Report Type: 
  Country: None (occurrence: None)
  Receive Date: 20070807
  Receipt Date: 20070726
  Transmission Date: 20080115
  Serious: Yes (Other)
  Sender: FDA-Public Use
  Company Number: FR-PFIZER INC-2007062425

PATIENT
  Age: 74 Year
  Sex: Female

DRUGS (1)
  1. ARTHROTEC [Suspect]

REACTIONS (3)
  - HEADACHE [None]
  - PAPILLOEDEMA [None]
  - VISUAL DISTURBANCE [None]
